FAERS Safety Report 9010319 (Version 1)
Quarter: 2013Q1

REPORT INFORMATION
  Report Type: Spontaneous
  Country: US (occurrence: US)
  Receive Date: 20130110
  Receipt Date: 20130110
  Transmission Date: 20140127
  Serious: No
  Sender: FDA-Public Use
  Company Number: US-PFIZER INC-2013010628

PATIENT
  Age: 64 Year
  Sex: Female
  Weight: 84.81 kg

DRUGS (3)
  1. LYRICA [Suspect]
     Indication: NERVE INJURY
     Dosage: 50 MG, DAILY
     Route: 048
     Dates: start: 2012, end: 2012
  2. LYRICA [Suspect]
     Indication: DIABETIC NEUROPATHY
  3. SIMVASTATIN [Concomitant]
     Indication: BLOOD CHOLESTEROL INCREASED
     Dosage: 20 MG, DAILY

REACTIONS (1)
  - Dizziness [Unknown]
